FAERS Safety Report 8745936 (Version 3)
Quarter: 2012Q4

REPORT INFORMATION
  Report Type: 
  Country: JP (occurrence: JP)
  Receive Date: 20120827
  Receipt Date: 20121214
  Transmission Date: 20130627
  Serious: Yes (Hospitalization)
  Sender: FDA-Public Use
  Company Number: JP-ELI_LILLY_AND_COMPANY-JP201208006607

PATIENT
  Age: 85 Year
  Sex: Female

DRUGS (1)
  1. HUMULIN 30% REGULAR, 70% NPH [Suspect]
     Indication: DIABETES MELLITUS
     Route: 058

REACTIONS (15)
  - Fall [Recovered/Resolved]
  - Injection site erythema [Unknown]
  - Rash pruritic [Unknown]
  - Stomatitis [Unknown]
  - Feeling abnormal [Unknown]
  - Injection site bruising [Not Recovered/Not Resolved]
  - Limb injury [Not Recovered/Not Resolved]
  - Weight decreased [Unknown]
  - Hypoglycaemia [Unknown]
  - Dizziness [Not Recovered/Not Resolved]
  - Hot flush [Not Recovered/Not Resolved]
  - Abdominal pain upper [Not Recovered/Not Resolved]
  - Dyspnoea [Not Recovered/Not Resolved]
  - Disturbance in attention [Not Recovered/Not Resolved]
  - Tinnitus [Not Recovered/Not Resolved]
